FAERS Safety Report 25411539 (Version 1)
Quarter: 2025Q2

REPORT INFORMATION
  Report Type: Spontaneous
  Country: US (occurrence: US)
  Receive Date: 20250609
  Receipt Date: 20250609
  Transmission Date: 20250716
  Serious: No
  Sender: SPECGX
  Company Number: US-SPECGX-T202500474

PATIENT
  Sex: Female
  Weight: 64 kg

DRUGS (3)
  1. ACETAMINOPHEN\HYDROCODONE [Suspect]
     Active Substance: ACETAMINOPHEN\HYDROCODONE
     Indication: Pain
     Dosage: 2 DOSAGE FORM, Q4H
     Route: 065
  2. ACETAMINOPHEN\HYDROCODONE [Suspect]
     Active Substance: ACETAMINOPHEN\HYDROCODONE
     Indication: Pain
     Dosage: 2 DOSAGE FORM, Q4H
     Route: 065
  3. ACETAMINOPHEN\HYDROCODONE [Suspect]
     Active Substance: ACETAMINOPHEN\HYDROCODONE
     Dosage: 3 DOSAGE FORM, Q4H
     Route: 065

REACTIONS (3)
  - Intentional product use issue [Not Recovered/Not Resolved]
  - Product dispensing error [Not Recovered/Not Resolved]
  - Drug ineffective [Not Recovered/Not Resolved]
